FAERS Safety Report 5885761-7 (Version None)
Quarter: 2008Q3

REPORT INFORMATION
  Report Type: 
  Country: None (occurrence: None)
  Receive Date: 20080916
  Receipt Date: 20080905
  Transmission Date: 20090109
  Serious: Yes (Hospitalization)
  Sender: FDA-Public Use
  Company Number: US-ELI_LILLY_AND_COMPANY-US200809001651

PATIENT
  Sex: Female
  Weight: 68.481 kg

DRUGS (13)
  1. BYETTA [Suspect]
     Dosage: UNK, UNKNOWN
     Dates: start: 20061117
  2. EVISTA [Concomitant]
  3. GLYBURIDE [Concomitant]
  4. NASONEX [Concomitant]
  5. REQUIP [Concomitant]
  6. DIOVAN [Concomitant]
  7. CLARITIN [Concomitant]
  8. PEPCID [Concomitant]
  9. CARAFATE [Concomitant]
  10. CALCIUM [Concomitant]
  11. PREDNISONE TAB [Concomitant]
  12. LORTAB [Concomitant]
  13. CORGARD [Concomitant]

REACTIONS (3)
  - JAUNDICE [None]
  - PANCREATITIS [None]
  - WEIGHT DECREASED [None]
